FAERS Safety Report 10192158 (Version 4)
Quarter: 2014Q2

REPORT INFORMATION
  Report Type: Report from Study
  Country: CA (occurrence: CA)
  Receive Date: 20140523
  Receipt Date: 20140626
  Transmission Date: 20141212
  Serious: Yes (Other)
  Sender: FDA-Public Use
  Company Number: CA-JNJFOC-20140420187

PATIENT
  Age: 49 Year
  Sex: Male
  Weight: 118.84 kg

DRUGS (10)
  1. REMICADE [Suspect]
     Indication: CROHN^S DISEASE
     Route: 042
  2. REMICADE [Suspect]
     Indication: CROHN^S DISEASE
     Route: 042
     Dates: start: 20140526
  3. REMICADE [Suspect]
     Indication: CROHN^S DISEASE
     Route: 042
     Dates: start: 201404
  4. REMICADE [Suspect]
     Indication: CROHN^S DISEASE
     Route: 042
     Dates: start: 201304
  5. METHOTREXATE [Suspect]
     Indication: PRODUCT USED FOR UNKNOWN INDICATION
     Route: 065
  6. PROZAC [Concomitant]
     Route: 065
  7. FOLIC ACID [Concomitant]
     Route: 065
  8. SEROQUEL [Concomitant]
     Route: 065
  9. VITAMIN B12 [Concomitant]
     Route: 065
  10. OXYCONTIN [Concomitant]
     Route: 065

REACTIONS (8)
  - Oedema peripheral [Recovering/Resolving]
  - Mass [Not Recovered/Not Resolved]
  - Cardiac failure congestive [Unknown]
  - Joint swelling [Recovering/Resolving]
  - Weight increased [Unknown]
  - Arthralgia [Unknown]
  - Urinary tract disorder [Unknown]
  - Dyspnoea [Unknown]
